FAERS Safety Report 24338601 (Version 1)
Quarter: 2024Q3

REPORT INFORMATION
  Report Type: Spontaneous
  Country: JP (occurrence: JP)
  Receive Date: 20240919
  Receipt Date: 20240919
  Transmission Date: 20241017
  Serious: Yes (Hospitalization)
  Sender: MYLAN
  Company Number: JP-MYLANLABS-2024M1083484

PATIENT
  Age: 63 Year
  Sex: Female
  Weight: 58 kg

DRUGS (13)
  1. PREGABALIN [Suspect]
     Active Substance: PREGABALIN
     Indication: Neuralgia
     Dosage: 25 MILLIGRAM, BID
     Route: 048
     Dates: start: 20230922, end: 20240705
  2. LOXOPROFEN [Suspect]
     Active Substance: LOXOPROFEN
     Indication: Pain
     Dosage: 60 MILLIGRAM, TID
     Route: 048
     Dates: start: 20230316, end: 20240705
  3. NIFEDIPINE [Suspect]
     Active Substance: NIFEDIPINE
     Indication: Hypertension
     Dosage: 40 MILLIGRAM, QD
     Route: 048
     Dates: start: 20230313, end: 20240705
  4. ROSUVASTATIN CALCIUM [Suspect]
     Active Substance: ROSUVASTATIN CALCIUM
     Indication: Hyperlipidaemia
     Dosage: 2.5 MILLIGRAM, QD
     Route: 065
     Dates: start: 20230313, end: 20240705
  5. REBAMIPIDE [Suspect]
     Active Substance: REBAMIPIDE
     Indication: Gastric ulcer
     Dosage: 100 MILLIGRAM, TID
     Route: 048
     Dates: end: 20240705
  6. DENOSUMAB [Suspect]
     Active Substance: DENOSUMAB
     Indication: Bone lesion
     Dosage: 120 MILLIGRAM
     Route: 058
     Dates: start: 20240517, end: 20240517
  7. DENOSUMAB [Suspect]
     Active Substance: DENOSUMAB
     Indication: Metastases to bone
  8. FEMARA [Concomitant]
     Active Substance: LETROZOLE
     Indication: Breast cancer
     Dosage: UNK
     Route: 048
     Dates: start: 20240517, end: 20240614
  9. FEMARA [Concomitant]
     Active Substance: LETROZOLE
     Indication: Metastases to lymph nodes
  10. VERZENIO [Concomitant]
     Active Substance: ABEMACICLIB
     Indication: Breast cancer
     Dosage: UNK
     Route: 048
     Dates: start: 20240517, end: 20240621
  11. VERZENIO [Concomitant]
     Active Substance: ABEMACICLIB
     Indication: Metastases to lymph nodes
  12. CALCIUM CARBONATE\CHOLECALCIFEROL\MAGNESIUM CARBONATE [Concomitant]
     Active Substance: CALCIUM CARBONATE\CHOLECALCIFEROL\MAGNESIUM CARBONATE
     Indication: Metastases to bone
     Dosage: UNK
     Route: 048
     Dates: start: 20240517, end: 20240705
  13. METHYLCOBALAMIN [Concomitant]
     Active Substance: METHYLCOBALAMIN
     Indication: Product used for unknown indication
     Dosage: UNK
     Route: 048
     Dates: start: 20230313, end: 20240705

REACTIONS (1)
  - Hepatic enzyme increased [Recovering/Resolving]

NARRATIVE: CASE EVENT DATE: 20240614
